FAERS Safety Report 16531450 (Version 1)
Quarter: 2019Q3

REPORT INFORMATION
  Report Type: Spontaneous
  Country: GB (occurrence: GB)
  Receive Date: 20190705
  Receipt Date: 20190705
  Transmission Date: 20191004
  Serious: Yes (Other)
  Sender: FDA-Public Use
  Company Number: GB-PFIZER INC-2019279688

PATIENT
  Age: 68 Year
  Sex: Female
  Weight: 66 kg

DRUGS (1)
  1. DOXYCYCLINE HYCLATE. [Suspect]
     Active Substance: DOXYCYCLINE HYCLATE
     Dosage: 100 MG, UNK
     Route: 048
     Dates: start: 20190304

REACTIONS (2)
  - Wheezing [Recovered/Resolved]
  - Dyspnoea [Recovered/Resolved]
